FAERS Safety Report 6978778-2 (Version None)
Quarter: 2010Q3

REPORT INFORMATION
  Report Type: 
  Country: None (occurrence: None)
  Receive Date: 20100913
  Receipt Date: 20100908
  Transmission Date: 20110219
  Serious: Yes (Life-Threatening)
  Sender: FDA-Public Use
  Company Number: DE-ROCHE-726086

PATIENT
  Sex: Female
  Weight: 73 kg

DRUGS (10)
  1. BEVACIZUMAB [Suspect]
     Indication: BREAST CANCER
     Dosage: LAST DOSE PRIOR TO SAE ON 30 AUG 2010;
     Route: 042
     Dates: start: 20091214, end: 20100830
  2. CAPECITABINE [Suspect]
     Indication: BREAST CANCER
     Route: 048
     Dates: start: 20091214, end: 20100615
  3. CARVEDILOL [Concomitant]
     Dates: start: 20100126
  4. CARVEDILOL [Concomitant]
     Dosage: DOSE INCREASED
     Dates: start: 20100805
  5. AMLODIPINE [Concomitant]
     Dates: start: 20100219, end: 20100611
  6. AMLODIPINE [Concomitant]
     Dates: start: 20100830
  7. TELMISARTAN [Concomitant]
     Dates: start: 20090529
  8. SPIRONOLACTONE [Concomitant]
     Dates: start: 20100830
  9. COLECALCIFEROL [Concomitant]
     Dosage: DOSE: 20000 IE MONTHLY
     Dates: start: 20100604
  10. BUDESONIDE/FORMOTEROL [Concomitant]
     Dosage: WHEN REQUIRED
     Dates: start: 20090529

REACTIONS (1)
  - INTESTINAL PERFORATION [None]
